FAERS Safety Report 7828153-3 (Version None)
Quarter: 2011Q4

REPORT INFORMATION
  Report Type: 
  Country: None (occurrence: None)
  Receive Date: 20111020
  Receipt Date: 20111011
  Transmission Date: 20120403
  Serious: Yes (Other)
  Sender: FDA-Public Use
  Company Number: JP-ASTRAZENECA-2011SE62480

PATIENT
  Age: 72 Year
  Sex: Female

DRUGS (5)
  1. SYMBICORT [Suspect]
     Indication: ASTHMA
     Dosage: 4 DF TWO TIMES A DAY
     Route: 055
     Dates: start: 20100913, end: 20110103
  2. SYMBICORT [Suspect]
     Dosage: 2 DF TWO TIMES A DAY
     Route: 055
     Dates: start: 20110104, end: 20110731
  3. SYMBICORT [Suspect]
     Dosage: 1 DF TWO TIMES A DAY
     Route: 055
     Dates: start: 20110801
  4. ARDEPHYLLIN [Concomitant]
     Indication: ASTHMA
     Route: 048
  5. ONON [Concomitant]
     Indication: ASTHMA
     Route: 048

REACTIONS (1)
  - BRONCHOPNEUMONIA [None]
